FAERS Safety Report 8003965-4 (Version None)
Quarter: 2011Q4

REPORT INFORMATION
  Report Type: 
  Country: None (occurrence: None)
  Receive Date: 20111222
  Receipt Date: 20111213
  Transmission Date: 20120403
  Serious: Yes (Hospitalization, Other)
  Sender: FDA-Public Use
  Company Number: US-ASTRAZENECA-2011SE07202

PATIENT
  Age: 67 Year
  Sex: Female

DRUGS (7)
  1. PRILOSEC [Suspect]
     Route: 048
  2. NEXIUM [Suspect]
     Route: 048
  3. CRESTOR [Suspect]
     Route: 048
  4. CHEMO [Concomitant]
  5. PROTONIX [Concomitant]
  6. NEXIUM [Suspect]
     Route: 048
  7. CRESTOR [Suspect]
     Route: 048

REACTIONS (8)
  - APHAGIA [None]
  - GRAFT VERSUS HOST DISEASE [None]
  - DEHYDRATION [None]
  - DRUG INEFFECTIVE [None]
  - LEUKAEMIA [None]
  - HEPATIC ENZYME ABNORMAL [None]
  - DRUG DOSE OMISSION [None]
  - MALAISE [None]
